FAERS Safety Report 14721085 (Version 2)
Quarter: 2018Q3

REPORT INFORMATION
  Report Type: Spontaneous
  Country: DE (occurrence: DE)
  Receive Date: 20180405
  Receipt Date: 20180731
  Transmission Date: 20181010
  Serious: Yes (Other)
  Sender: FDA-Public Use
  Company Number: DE-MYLANLABS-2018M1020636

PATIENT
  Age: 38 Year
  Sex: Female

DRUGS (5)
  1. VALPROIC ACID. [Suspect]
     Active Substance: VALPROIC ACID
     Indication: FRONTAL LOBE EPILEPSY
     Dosage: 1000 MG, QD (DAILY DOSE: 1000 MG MILLIGRAM(S) EVERY DAY)
     Route: 065
  2. LEVETIRACETAM. [Suspect]
     Active Substance: LEVETIRACETAM
     Indication: EPILEPSY
     Dosage: UNK
     Route: 065
  3. CLOBAZAM [Suspect]
     Active Substance: CLOBAZAM
     Indication: EPILEPSY
     Dosage: UNK
  4. CARBAMAZEPINE. [Suspect]
     Active Substance: CARBAMAZEPINE
     Indication: EPILEPSY
     Dosage: UNK
     Route: 065
  5. TOPIRAMATE. [Suspect]
     Active Substance: TOPIRAMATE
     Indication: EPILEPSY
     Dosage: UNK
     Route: 065

REACTIONS (11)
  - Encephalopathy [Unknown]
  - Disturbance in attention [Recovering/Resolving]
  - Bradyphrenia [Recovering/Resolving]
  - Fall [Recovering/Resolving]
  - Nausea [Unknown]
  - Seizure [Recovering/Resolving]
  - Gait disturbance [Recovering/Resolving]
  - Vomiting [Unknown]
  - Asterixis [Recovering/Resolving]
  - Hyperammonaemia [Recovering/Resolving]
  - Ataxia [Recovering/Resolving]
